FAERS Safety Report 7284106-8 (Version None)
Quarter: 2011Q1

REPORT INFORMATION
  Report Type: 
  Country: None (occurrence: None)
  Receive Date: 20110209
  Receipt Date: 20100624
  Transmission Date: 20110831
  Serious: No
  Sender: FDA-Public Use
  Company Number: US-PFIZER INC-2010079048

PATIENT

DRUGS (2)
  1. GEODON [Suspect]
     Dosage: 100 MG, UNK
  2. GEODON [Suspect]
     Dosage: 100 MG, UNK

REACTIONS (1)
  - URTICARIA [None]
